FAERS Safety Report 8053083-4 (Version None)
Quarter: 2012Q1

REPORT INFORMATION
  Report Type: 
  Country: None (occurrence: None)
  Receive Date: 20120112
  Receipt Date: 20111229
  Transmission Date: 20120608
  Serious: Yes (Life-Threatening, Hospitalization)
  Sender: FDA-Public Use
  Company Number: US-2011-10165

PATIENT
  Age: 49 Year
  Sex: Female

DRUGS (11)
  1. DILAUDID [Concomitant]
  2. NEXIUM [Concomitant]
  3. ACYCLOVIR [Concomitant]
  4. ETOPOSIDE [Concomitant]
  5. FENTANYL (FETANYL CITRATE) [Concomitant]
  6. VICODIN [Concomitant]
  7. IMIPENEM (CILASTATIN SODIUM, IMIPENEM) [Concomitant]
  8. CYCLOPHOSPHAMIDE [Concomitant]
  9. GABAPENTIN [Concomitant]
  10. BUSULFAN [Suspect]
     Indication: STEM CELL TRANSPLANT
     Dosage: 35 MG MILLIGRAM(S), DAILY DOSE,INTRAVENOUS;  195 MG MILLIGRAM(S), DAILY DOSE, INTRAVENOUS
     Route: 042
     Dates: start: 20101227, end: 20101227
  11. BUSULFAN [Suspect]
     Indication: STEM CELL TRANSPLANT
     Dosage: 35 MG MILLIGRAM(S), DAILY DOSE,INTRAVENOUS;  195 MG MILLIGRAM(S), DAILY DOSE, INTRAVENOUS
     Route: 042
     Dates: start: 20101229, end: 20110101

REACTIONS (1)
  - SUBDURAL HAEMATOMA [None]
